FAERS Safety Report 7211335-1 (Version None)
Quarter: 2011Q1

REPORT INFORMATION
  Report Type: 
  Country: None (occurrence: None)
  Receive Date: 20110105
  Receipt Date: 20101110
  Transmission Date: 20110831
  Serious: Yes (Death, Hospitalization, Other)
  Sender: FDA-Public Use
  Company Number: PL-CEPHALON-2010005298

PATIENT
  Sex: Male
  Weight: 95 kg

DRUGS (8)
  1. DURAGESIC-50 [Concomitant]
     Dates: start: 20090217
  2. PARACETAMOL [Concomitant]
  3. AMLODIPINE [Concomitant]
  4. PRAMOLAN [Concomitant]
     Dates: start: 20090804
  5. ZOFRAN [Concomitant]
  6. FENTANYL CITRATE [Suspect]
     Indication: BREAKTHROUGH PAIN
     Route: 002
     Dates: start: 20091210, end: 20101022
  7. METOCLOPRAMIDE [Concomitant]
     Dates: start: 20090904
  8. XELODA [Concomitant]
     Dates: start: 20090504

REACTIONS (2)
  - NEOPLASM MALIGNANT [None]
  - ILEUS [None]
